FAERS Safety Report 7139320-9 (Version None)
Quarter: 2010Q4

REPORT INFORMATION
  Report Type: 
  Country: None (occurrence: None)
  Receive Date: 20101206
  Receipt Date: 20100726
  Transmission Date: 20110411
  Serious: Yes (Other)
  Sender: FDA-Public Use
  Company Number: PHHY2010TZ52048

PATIENT
  Age: 12 Year
  Sex: Female

DRUGS (1)
  1. COARTEM [Suspect]
     Indication: MALARIA

REACTIONS (2)
  - DYSPNOEA [None]
  - VOMITING [None]
